FAERS Safety Report 4885499-9 (Version None)
Quarter: 2005Q4

REPORT INFORMATION
  Report Type: 
  Country: None (occurrence: None)
  Receive Date: 20051220
  Receipt Date: 20050201
  Transmission Date: 20060501
  Serious: Yes (Life-Threatening, Hospitalization, Other)
  Sender: FDA-Public Use
  Company Number: HQWYE038102FEB05

PATIENT
  Age: 56 Year
  Sex: Male
  Weight: 77.18 kg

DRUGS (3)
  1. EFFEXOR XR [Suspect]
     Dosage: 37.5 MG 1X PER 1 DAY, ORAL
     Route: 048
     Dates: start: 20050128, end: 20050131
  2. ACCUPRIL [Concomitant]
  3. ACYCLOVIR [Concomitant]

REACTIONS (1)
  - SUICIDE ATTEMPT [None]
